FAERS Safety Report 5580468-8 (Version None)
Quarter: 2007Q4

REPORT INFORMATION
  Report Type: 
  Country: None (occurrence: None)
  Receive Date: 20071231
  Receipt Date: 20071231
  Transmission Date: 20080405
  Serious: Yes (Hospitalization)
  Sender: FDA-Public Use
  Company Number: None

PATIENT
  Age: 10 Year
  Sex: Male
  Weight: 19 kg

DRUGS (2)
  1. HEPARIN SODIUM [Suspect]
     Indication: INTRAVENOUS CATHETER MANAGEMENT
     Dosage: 5ML QD IV
     Route: 042
     Dates: start: 20071211, end: 20071226
  2. NORMAL SALINE PF 10ML/12ML SYRINGE MEDEFIL [Suspect]
     Indication: INTRAVENOUS CATHETER MANAGEMENT
     Dosage: 10 ML PRN UT DICT IV
     Route: 042
     Dates: start: 20071211, end: 20071226

REACTIONS (1)
  - PSEUDOMONAS INFECTION [None]
